FAERS Safety Report 7466218-9 (Version None)
Quarter: 2011Q2

REPORT INFORMATION
  Report Type: 
  Country: None (occurrence: None)
  Receive Date: 20110509
  Receipt Date: 20110426
  Transmission Date: 20111010
  Serious: Yes (Other)
  Sender: FDA-Public Use
  Company Number: PT-ELI_LILLY_AND_COMPANY-PT201105001077

PATIENT
  Age: 48 Year
  Sex: Female

DRUGS (2)
  1. PROZAC [Suspect]
     Indication: DEPRESSION
  2. SIBUTRAMINE HYDROCHLORIDE MONOHYDRATE [Concomitant]
     Dosage: UNK, OTHER

REACTIONS (2)
  - DRUG INTERACTION [None]
  - CEREBRAL VASOCONSTRICTION [None]
